FAERS Safety Report 5807899-2 (Version None)
Quarter: 2008Q3

REPORT INFORMATION
  Report Type: 
  Country: None (occurrence: None)
  Receive Date: 20080711
  Receipt Date: 20080701
  Transmission Date: 20090109
  Serious: Yes (Other)
  Sender: FDA-Public Use
  Company Number: US-PFIZER INC-2008024924

PATIENT
  Sex: Female
  Weight: 94.8 kg

DRUGS (13)
  1. LIPITOR [Suspect]
     Indication: BLOOD CHOLESTEROL INCREASED
     Route: 048
     Dates: start: 20070101, end: 20080201
  2. ATENOLOL [Suspect]
     Route: 048
  3. KLOR-CON [Suspect]
     Indication: MINERAL SUPPLEMENTATION
     Route: 048
     Dates: start: 20070101, end: 20080301
  4. WARFARIN SODIUM [Suspect]
     Dosage: TEXT:7.5 MG TO 10 MG
     Route: 048
  5. PREVACID [Concomitant]
  6. TIKOSYN [Concomitant]
  7. AMLODIPINE [Concomitant]
  8. LASIX [Concomitant]
  9. ZOLOFT [Concomitant]
  10. MULTI-VITAMINS [Concomitant]
  11. POTASSIUM CHLORIDE [Concomitant]
  12. REGLAN [Concomitant]
  13. LISINOPRIL [Concomitant]

REACTIONS (6)
  - HAEMORRHOIDAL HAEMORRHAGE [None]
  - HEADACHE [None]
  - MUSCLE SPASMS [None]
  - OEDEMA [None]
  - ORAL SURGERY [None]
  - SARCOMA [None]
